FAERS Safety Report 9553525 (Version 3)
Quarter: 2013Q4

REPORT INFORMATION
  Report Type: Spontaneous
  Country: DK (occurrence: GB)
  Receive Date: 20130925
  Receipt Date: 20131024
  Transmission Date: 20140711
  Serious: Yes (Death)
  Sender: FDA-Public Use
  Company Number: GB-FRI-1000048746

PATIENT
  Age: 0 Day
  Sex: Female
  Weight: 3.9 kg

DRUGS (2)
  1. DINOPROSTONE [Suspect]
     Indication: INDUCED LABOUR
     Route: 064
     Dates: start: 20130306, end: 20130307
  2. LEVOTHYROXINE [Concomitant]
     Route: 064

REACTIONS (2)
  - Multi-organ failure [Fatal]
  - Neonatal hypoxia [Fatal]
